FAERS Safety Report 8305907-0 (Version None)
Quarter: 2012Q1

REPORT INFORMATION
  Report Type: 
  Country: None (occurrence: None)
  Receive Date: 20120326
  Receipt Date: 20111128
  Transmission Date: 20120608
  Serious: Yes (Other)
  Sender: FDA-Public Use
  Company Number: PHEH2011US010416

PATIENT
  Age: 67 Year
  Sex: Female
  Weight: 13.6 kg

DRUGS (1)
  1. VIVELLE-DOT [Suspect]
     Dosage: 0.1 MG, TWICE WEEKLY, TRANSDERMAL
     Route: 062

REACTIONS (3)
  - FEELING ABNORMAL [None]
  - WEIGHT INCREASED [None]
  - INSOMNIA [None]
